FAERS Safety Report 9665253 (Version 3)
Quarter: 2014Q3

REPORT INFORMATION
  Report Type: Report from Study
  Country: JP (occurrence: JP)
  Receive Date: 20131101
  Receipt Date: 20140808
  Transmission Date: 20150326
  Serious: Yes (Hospitalization)
  Sender: FDA-Public Use
  Company Number: JP-ABBVIE-07P-087-0418599-00

PATIENT
  Age: 40 Year
  Sex: Male

DRUGS (26)
  1. NORVIR [Suspect]
     Active Substance: RITONAVIR
     Dosage: DIVIDED DOSE, FREQUENCY UNKNOWN
     Route: 048
     Dates: start: 20050622, end: 20070510
  2. EPIVIR [Suspect]
     Active Substance: LAMIVUDINE
     Indication: HIV INFECTION
     Route: 048
     Dates: start: 20050722, end: 20050802
  3. TRUVADA [Suspect]
     Active Substance: EMTRICITABINE\TENOFOVIR DISOPROXIL FUMARATE
     Dates: start: 20110701
  4. NORVIR [Concomitant]
     Active Substance: RITONAVIR
     Indication: PRODUCT USED FOR UNKNOWN INDICATION
     Dates: start: 20110701
  5. STOCRIN [Suspect]
     Active Substance: EFAVIRENZ
     Route: 048
     Dates: start: 20090717, end: 20091016
  6. STOCRIN [Suspect]
     Active Substance: EFAVIRENZ
     Dates: start: 20091016, end: 20100930
  7. ABACAVIR SULFATE W/LAMIVUDINE [Concomitant]
     Active Substance: ABACAVIR\LAMIVUDINE
     Indication: PRODUCT USED FOR UNKNOWN INDICATION
     Dates: start: 20110119, end: 20110630
  8. NORVIR [Suspect]
     Active Substance: RITONAVIR
     Indication: HIV INFECTION
     Dosage: DIVIDED DOSE, FREQUENCY UNKNOWN
     Route: 048
     Dates: start: 20041221, end: 20050121
  9. KALETRA [Suspect]
     Active Substance: LOPINAVIR\RITONAVIR
     Dosage: DIVIDED DOSE, FREQUENCY UNKNOWN
     Route: 048
     Dates: start: 20070511, end: 20091016
  10. EPIVIR [Suspect]
     Active Substance: LAMIVUDINE
     Route: 048
     Dates: start: 20050803, end: 20071213
  11. COMBIVIR [Suspect]
     Active Substance: LAMIVUDINE\ZIDOVUDINE
     Indication: HIV INFECTION
     Dates: start: 20040514, end: 20050121
  12. DARUNAVIR [Concomitant]
     Active Substance: DARUNAVIR
     Indication: PRODUCT USED FOR UNKNOWN INDICATION
     Dates: start: 20110119
  13. TRUVADA [Suspect]
     Active Substance: EMTRICITABINE\TENOFOVIR DISOPROXIL FUMARATE
     Indication: HIV INFECTION
     Dosage: DIVIDED DOSE, FREQUENCY UNKNOWN
     Route: 048
     Dates: start: 20071214, end: 20101001
  14. VIREAD [Suspect]
     Active Substance: TENOFOVIR DISOPROXIL FUMARATE
     Indication: HIV INFECTION
     Route: 048
     Dates: start: 20050802, end: 20071213
  15. KALETRA [Suspect]
     Active Substance: LOPINAVIR\RITONAVIR
     Indication: HIV INFECTION
     Route: 048
     Dates: start: 20040514, end: 20040530
  16. ISENTRESS [Suspect]
     Active Substance: RALTEGRAVIR POTASSIUM
     Indication: HIV INFECTION
     Dosage: DIVIDED DOSE, FREQUENCY UNKNOWN
     Route: 048
     Dates: start: 20091016, end: 20100930
  17. STOCRIN [Suspect]
     Active Substance: EFAVIRENZ
     Indication: HIV INFECTION
     Dosage: DIVIDED DOSE, FREQUENCY UNKNOWN
     Route: 048
     Dates: start: 20040614, end: 20041221
  18. EMTRICITABINE W/TENOFOVIR [Suspect]
     Active Substance: EMTRICITABINE\TENOFOVIR DISOPROXIL
     Indication: HIV INFECTION
     Route: 048
     Dates: start: 20071214, end: 20101001
  19. EMTRICITABINE W/TENOFOVIR [Suspect]
     Active Substance: EMTRICITABINE\TENOFOVIR DISOPROXIL
     Route: 048
     Dates: start: 20110701
  20. NORVIR [Suspect]
     Active Substance: RITONAVIR
     Route: 048
     Dates: start: 20110119, end: 20110630
  21. COMBIVIR [Suspect]
     Active Substance: LAMIVUDINE\ZIDOVUDINE
     Dates: start: 20050622, end: 20050722
  22. RETROVIR [Suspect]
     Active Substance: ZIDOVUDINE
     Indication: PRODUCT USED FOR UNKNOWN INDICATION
     Dates: start: 20050722, end: 20050802
  23. REYATAZ [Suspect]
     Active Substance: ATAZANAVIR SULFATE
     Indication: HIV INFECTION
     Route: 048
     Dates: start: 20041221, end: 20050121
  24. REYATAZ [Suspect]
     Active Substance: ATAZANAVIR SULFATE
     Route: 048
     Dates: start: 20050622, end: 20070510
  25. VIREAD [Suspect]
     Active Substance: TENOFOVIR DISOPROXIL FUMARATE
     Dates: start: 20090717
  26. STOCRIN [Suspect]
     Active Substance: EFAVIRENZ
     Route: 048
     Dates: start: 20051209, end: 20070711

REACTIONS (2)
  - Diabetes mellitus inadequate control [Not Recovered/Not Resolved]
  - Diabetes mellitus [Not Recovered/Not Resolved]

NARRATIVE: CASE EVENT DATE: 20070302
